FAERS Safety Report 9648073 (Version 3)
Quarter: 2013Q4

REPORT INFORMATION
  Report Type: Report from Study
  Country: FR (occurrence: FR)
  Receive Date: 20131028
  Receipt Date: 20131118
  Transmission Date: 20140711
  Serious: Yes (Hospitalization)
  Sender: FDA-Public Use
  Company Number: FR-MPIJNJ-2013JNJ000730

PATIENT
  Sex: 0

DRUGS (5)
  1. VELCADE [Suspect]
     Indication: PLASMA CELL MYELOMA
     Dosage: 2.2 MG, QD
     Route: 058
     Dates: start: 20130830
  2. DEXAMETHASONE [Suspect]
     Indication: PLASMA CELL MYELOMA
     Dosage: 20 MG, UNK
     Route: 048
     Dates: start: 20130829
  3. ZELITREX [Concomitant]
     Indication: PRODUCT USED FOR UNKNOWN INDICATION
     Dosage: 500 MG, BID
  4. SKENAN [Concomitant]
     Indication: BONE PAIN
     Dosage: 30 MG, BID
  5. ACTISKENAN [Concomitant]
     Indication: BONE PAIN
     Dosage: 5 MG, UNK

REACTIONS (1)
  - Sinusitis [Recovered/Resolved]
